FAERS Safety Report 25507656 (Version 1)
Quarter: 2025Q3

REPORT INFORMATION
  Report Type: Spontaneous
  Country: EU (occurrence: EU)
  Receive Date: 20250703
  Receipt Date: 20250703
  Transmission Date: 20251021
  Serious: Yes (Other)
  Sender: AUROBINDO
  Company Number: EU-ROCHE-2848495

PATIENT
  Age: 5 Year
  Sex: Male

DRUGS (6)
  1. MYCOPHENOLATE MOFETIL [Suspect]
     Active Substance: MYCOPHENOLATE MOFETIL
     Indication: Chronic inflammatory demyelinating polyradiculoneuropathy
     Dosage: 750 MILLIGRAM, TWO TIMES A DAY
     Route: 065
  2. AZATHIOPRINE [Suspect]
     Active Substance: AZATHIOPRINE
     Indication: Chronic inflammatory demyelinating polyradiculoneuropathy
     Route: 065
  3. CYCLOPHOSPHAMIDE [Suspect]
     Active Substance: CYCLOPHOSPHAMIDE
     Indication: Chronic inflammatory demyelinating polyradiculoneuropathy
     Route: 065
  4. CYCLOPHOSPHAMIDE [Suspect]
     Active Substance: CYCLOPHOSPHAMIDE
     Route: 065
  5. FLUDARABINE [Suspect]
     Active Substance: FLUDARABINE PHOSPHATE
     Indication: Prophylaxis against transplant rejection
     Route: 065
  6. RITUXIMAB [Suspect]
     Active Substance: RITUXIMAB
     Indication: Prophylaxis against transplant rejection
     Route: 065

REACTIONS (9)
  - Engraftment syndrome [Unknown]
  - Atrial fibrillation [Unknown]
  - Cytomegalovirus infection reactivation [Unknown]
  - Epstein-Barr virus infection reactivation [Unknown]
  - Autoimmune thyroiditis [Unknown]
  - Device related infection [Unknown]
  - Ear infection [Unknown]
  - Rhinitis [Unknown]
  - Pharyngitis [Unknown]
